FAERS Safety Report 4582754-7 (Version None)
Quarter: 2005Q1

REPORT INFORMATION
  Report Type: 
  Country: None (occurrence: None)
  Receive Date: 20050124
  Receipt Date: 20040316
  Transmission Date: 20050727
  Serious: Yes (Other)
  Sender: FDA-Public Use
  Company Number: 2004IM000460

PATIENT
  Age: 70 Year
  Sex: Female
  Weight: 65.5 kg

DRUGS (8)
  1. AMPHOCIL (AMPHOTERICIN B COLLOIDAL DISPERSION) [Suspect]
     Indication: ASPERGILLOSIS
     Dosage: 25 MG;QD;INTRAVENOUS
     Route: 042
     Dates: start: 20040313, end: 20040315
  2. TRAMADOL HCL [Concomitant]
  3. PERINDOPRIL [Concomitant]
  4. PREDNISOLONE [Concomitant]
  5. INSULIN MIXTARD [Concomitant]
  6. ASPIRIN [Concomitant]
  7. VIOXX [Concomitant]
  8. FUROSEMIDE [Concomitant]

REACTIONS (1)
  - THROMBOCYTOPENIA [None]
